FAERS Safety Report 14655830 (Version 1)
Quarter: 2018Q1

REPORT INFORMATION
  Report Type: Spontaneous
  Country: BR (occurrence: BR)
  Receive Date: 20180319
  Receipt Date: 20180319
  Transmission Date: 20180509
  Serious: Yes (Hospitalization, Other)
  Sender: FDA-Public Use
  Company Number: BR-BAYER-2018-052518

PATIENT
  Age: 69 Year
  Sex: Male

DRUGS (1)
  1. ASPIRINA 100 MG [Suspect]
     Active Substance: ASPIRIN
     Indication: CORONARY ARTERY DISEASE
     Dosage: 100 MG, MT
     Route: 048
     Dates: start: 20170822

REACTIONS (3)
  - Chest pain [None]
  - Arrhythmia [None]
  - Catheter placement [None]

NARRATIVE: CASE EVENT DATE: 201712
